FAERS Safety Report 5232593-9 (Version None)
Quarter: 2007Q1

REPORT INFORMATION
  Report Type: 
  Country: None (occurrence: None)
  Receive Date: 20070207
  Receipt Date: 20070112
  Transmission Date: 20070707
  Serious: Yes (Congenital Anomaly)
  Sender: FDA-Public Use
  Company Number: US-ROCHE-480493

PATIENT
  Weight: 1.5 kg

DRUGS (12)
  1. MYCOPHENOLATE MOFETIL [Suspect]
  2. TACROLIMUS [Concomitant]
  3. PREDNISONE [Concomitant]
  4. SIROLIMUS [Concomitant]
     Dosage: STARTED AT 24 WEEKS GESTATION
  5. CORTICOSTEROIDS [Concomitant]
     Dosage: TREATMENT FOR REJECTION
  6. THYMOGLOBULIN [Concomitant]
     Dosage: TREATMENT FOR REJECTION
  7. LABETALOL HCL [Concomitant]
  8. OMEPRAZOLE [Concomitant]
  9. AZTREONAM [Concomitant]
  10. CLINDAMYCIN [Concomitant]
  11. GANCICLOVIR [Concomitant]
  12. EPOGEN [Concomitant]

REACTIONS (4)
  - CLEFT LIP AND PALATE [None]
  - MICROTIA [None]
  - PREMATURE BABY [None]
  - SMALL FOR DATES BABY [None]
